FAERS Safety Report 6573936-3 (Version None)
Quarter: 2010Q1

REPORT INFORMATION
  Report Type: 
  Country: None (occurrence: None)
  Receive Date: 20100208
  Receipt Date: 20100127
  Transmission Date: 20100710
  Serious: Yes (Other)
  Sender: FDA-Public Use
  Company Number: JP-PFIZER INC-2010012640

PATIENT
  Age: 67 Year
  Sex: Male

DRUGS (5)
  1. CLINDAMYCIN HCL [Suspect]
     Indication: OSTEOMYELITIS CHRONIC
  2. CEFAZOLIN [Suspect]
     Indication: OSTEOMYELITIS CHRONIC
  3. CO-TRIMOXAZOLE [Suspect]
  4. RIFAMPICIN [Suspect]
  5. VANCOMYCIN [Suspect]

REACTIONS (1)
  - TUBULOINTERSTITIAL NEPHRITIS [None]
